FAERS Safety Report 15722836 (Version 1)
Quarter: 2018Q4

REPORT INFORMATION
  Report Type: Spontaneous
  Country: US (occurrence: US)
  Receive Date: 20181214
  Receipt Date: 20181214
  Transmission Date: 20190205
  Serious: Yes (Hospitalization)
  Sender: FDA-Public Use
  Company Number: None

PATIENT
  Sex: Male

DRUGS (4)
  1. POT CL MICRO, TYLENOL, PEPCID, ZOFRAN [Concomitant]
  2. IMODIUM A-D, CARDURA, CLARITIN, REMERON [Concomitant]
  3. CELEXA, ASPIRIN [Concomitant]
  4. CAPECITABINE. [Suspect]
     Active Substance: CAPECITABINE
     Indication: NEOPLASM MALIGNANT
     Dosage: ?          OTHER FREQUENCY:DAILY AS DIRECTED;?
     Route: 048
     Dates: start: 20150106

REACTIONS (1)
  - Pneumonia [None]
